FAERS Safety Report 23366102 (Version 1)
Quarter: 2024Q1

REPORT INFORMATION
  Report Type: Spontaneous
  Country: US (occurrence: None)
  Receive Date: 20240103
  Receipt Date: 20240103
  Transmission Date: 20240410
  Serious: Yes (Death)
  Sender: FDA-Public Use
  Company Number: None

PATIENT
  Age: 78 Year
  Sex: Male

DRUGS (1)
  1. PIRFENIDONE [Suspect]
     Active Substance: PIRFENIDONE
     Dosage: 534MG TID W/FOOD PO?
     Route: 048
     Dates: start: 2023, end: 2023

REACTIONS (1)
  - Death [None]

NARRATIVE: CASE EVENT DATE: 20231229
